FAERS Safety Report 23866399 (Version 1)
Quarter: 2024Q2

REPORT INFORMATION
  Report Type: Spontaneous
  Country: CN (occurrence: CN)
  Receive Date: 20240517
  Receipt Date: 20240517
  Transmission Date: 20240715
  Serious: Yes (Other)
  Sender: FDA-Public Use
  Company Number: CN-JNJFOC-20240541498

PATIENT
  Age: 33 Day
  Sex: Male
  Weight: 0.95 kg

DRUGS (1)
  1. CHILDRENS MOTRIN [Suspect]
     Active Substance: IBUPROFEN
     Indication: Patent ductus arteriosus
     Dosage: ROUTE OF ADMINISTRATION: NASOGASTRIC GAVAGE
     Route: 048
     Dates: start: 20240406, end: 20240408

REACTIONS (2)
  - Oliguria [Recovered/Resolved]
  - Off label use [Unknown]

NARRATIVE: CASE EVENT DATE: 20240406
